FAERS Safety Report 17387219 (Version 1)
Quarter: 2020Q1

REPORT INFORMATION
  Report Type: Spontaneous
  Country: US (occurrence: US)
  Receive Date: 20200122
  Receipt Date: 20200122
  Transmission Date: 20200409
  Serious: Yes (Other)
  Sender: FDA-Public Use
  Company Number: None

PATIENT
  Age: 71 Year
  Sex: Female
  Weight: 78.93 kg

DRUGS (3)
  1. LUNESTA [Concomitant]
     Active Substance: ESZOPICLONE
  2. MEIJER ENAMEL GUARD [Suspect]
     Active Substance: POTASSIUM NITRATE\SODIUM FLUORIDE
     Indication: HYPERAESTHESIA TEETH
     Dosage: ?          OTHER ROUTE:TOOTHPASTE?
     Dates: start: 201901, end: 201912
  3. HCTZ [Concomitant]
     Active Substance: HYDROCHLOROTHIAZIDE

REACTIONS (6)
  - Product substitution issue [None]
  - Product label issue [None]
  - Application site swelling [None]
  - Application site ulcer [None]
  - Application site haemorrhage [None]
  - Application site erythema [None]

NARRATIVE: CASE EVENT DATE: 20190101
